FAERS Safety Report 7774409-2 (Version None)
Quarter: 2011Q3

REPORT INFORMATION
  Report Type: 
  Country: None (occurrence: None)
  Receive Date: 20110921
  Receipt Date: 20110606
  Transmission Date: 20111222
  Serious: Yes (Hospitalization)
  Sender: FDA-Public Use
  Company Number: UTC-007291

PATIENT
  Age: 68 Year
  Sex: Female

DRUGS (2)
  1. COUMADIN [Concomitant]
  2. TYVASO [Suspect]
     Indication: PULMONARY ARTERIAL HYPERTENSION
     Dosage: 18 TO 54 MCG/TREATMENT (4 IN 1 D), INHALATION
     Route: 055
     Dates: start: 20091229

REACTIONS (2)
  - PULMONARY HYPERTENSION [None]
  - DYSPNOEA [None]
